FAERS Safety Report 8964102 (Version 2)
Quarter: 2013Q1

REPORT INFORMATION
  Report Type: Spontaneous
  Country: CA (occurrence: CA)
  Receive Date: 20121213
  Receipt Date: 20130201
  Transmission Date: 20140127
  Serious: Yes (Death)
  Sender: FDA-Public Use
  Company Number: CA-B.I. PHARMACEUTICALS,INC./RIDGEFIELD-2012-CN-02516CN

PATIENT
  Age: 86 Year
  Sex: Female
  Weight: 81.64 kg

DRUGS (9)
  1. PRADAX [Suspect]
     Indication: ATRIAL FIBRILLATION
     Dosage: 110 MG
     Route: 065
     Dates: start: 20111129
  2. CRESTOR [Concomitant]
  3. GLYBURIDE [Concomitant]
  4. NOVO-SEMIDE [Concomitant]
  5. RAN-METFORMIN [Concomitant]
  6. ALTACE [Concomitant]
  7. REMINYL ER [Concomitant]
  8. SANDOZ BISOPROLOL [Concomitant]
  9. EXELON [Concomitant]

REACTIONS (12)
  - Vaginal haemorrhage [Fatal]
  - Abdominal pain [Fatal]
  - Crying [Fatal]
  - Haemorrhage [Fatal]
  - Haemoglobin decreased [Fatal]
  - Blood glucose decreased [Fatal]
  - Blood glucose fluctuation [Fatal]
  - Blood glucose increased [Fatal]
  - Decreased appetite [Fatal]
  - Dizziness [Fatal]
  - International normalised ratio increased [Fatal]
  - Orthostatic hypotension [Fatal]
